FAERS Safety Report 20517413 (Version 3)
Quarter: 2024Q2

REPORT INFORMATION
  Report Type: Report from Study
  Country: US (occurrence: US)
  Receive Date: 20220225
  Receipt Date: 20240514
  Transmission Date: 20240716
  Serious: Yes (Hospitalization, Other)
  Sender: FDA-Public Use
  Company Number: US-AMNEAL PHARMACEUTICALS-2022-AMRX-00468

PATIENT
  Sex: Male
  Weight: 59.864 kg

DRUGS (4)
  1. CARBIDOPA\LEVODOPA [Suspect]
     Active Substance: CARBIDOPA\LEVODOPA
     Indication: Product used for unknown indication
     Dosage: 61.25/245MG, 1 CAPSULES, 5 /DAY
     Route: 048
     Dates: end: 202110
  2. CARBIDOPA\LEVODOPA [Suspect]
     Active Substance: CARBIDOPA\LEVODOPA
     Dosage: UNK
     Route: 048
     Dates: end: 2022
  3. CARBIDOPA\LEVODOPA [Suspect]
     Active Substance: CARBIDOPA\LEVODOPA
     Dosage: 61.25/245MG, 1 CAPSULES, 6 /DAY AT 6AM, 10AM, 1PM, 4PM, 7PM, 11PM
     Route: 048
     Dates: start: 20220315
  4. CARBIDOPA\LEVODOPA [Suspect]
     Active Substance: CARBIDOPA\LEVODOPA
     Dosage: 61.25/245MG, 2 CAPSULES, 4 /DAY
     Route: 048
     Dates: start: 20240507

REACTIONS (11)
  - Periprosthetic fracture [Unknown]
  - Hip arthroplasty [Unknown]
  - Fall [Unknown]
  - Thrombosis [Recovering/Resolving]
  - Joint injury [Recovering/Resolving]
  - Urinary tract infection [Recovering/Resolving]
  - Dysphagia [Recovering/Resolving]
  - Freezing phenomenon [Unknown]
  - Musculoskeletal stiffness [Unknown]
  - Therapy cessation [Unknown]
  - Dry mouth [Unknown]

NARRATIVE: CASE EVENT DATE: 20210101
